FAERS Safety Report 4888743-7 (Version None)
Quarter: 2005Q4

REPORT INFORMATION
  Report Type: 
  Country: None (occurrence: None)
  Receive Date: 20051216
  Receipt Date: 20050907
  Transmission Date: 20060501
  Serious: No
  Sender: FDA-Public Use
  Company Number: USA0509107436

PATIENT
  Sex: Male

DRUGS (1)
  1. CIALIS [Suspect]
     Dates: start: 20050907

REACTIONS (1)
  - ERECTION INCREASED [None]
